FAERS Safety Report 7911421-4 (Version None)
Quarter: 2011Q4

REPORT INFORMATION
  Report Type: 
  Country: None (occurrence: None)
  Receive Date: 20111114
  Receipt Date: 20111107
  Transmission Date: 20120403
  Serious: Yes (Death)
  Sender: FDA-Public Use
  Company Number: NL-UCBSA-045199

PATIENT
  Age: 64 Year
  Sex: Male

DRUGS (3)
  1. CIMZIA [Suspect]
     Indication: RHEUMATOID ARTHRITIS
     Route: 058
     Dates: start: 20110101, end: 20111104
  2. FLUCLOXACILLINE [Concomitant]
     Indication: INFECTION
     Route: 048
  3. CIMZIA [Suspect]
     Dosage: 0,2 AND 4 WEEKS
     Route: 058
     Dates: start: 20110317, end: 20110101

REACTIONS (3)
  - ARTHRITIS BACTERIAL [None]
  - MULTI-ORGAN FAILURE [None]
  - SEPSIS [None]
